FAERS Safety Report 9013498 (Version 2)
Quarter: 2013Q3

REPORT INFORMATION
  Report Type: Spontaneous
  Country: US (occurrence: US)
  Receive Date: 20130115
  Receipt Date: 20130912
  Transmission Date: 20140515
  Serious: Yes (Hospitalization)
  Sender: FDA-Public Use
  Company Number: US-BAYER-2013-003421

PATIENT
  Age: 47 Year
  Sex: Female
  Weight: 63.49 kg

DRUGS (10)
  1. YAZ [Suspect]
  2. YASMIN [Suspect]
     Indication: CONTRACEPTION
  3. YASMIN [Suspect]
     Indication: MENSTRUAL CYCLE MANAGEMENT
  4. GIANVI [Suspect]
  5. OCELLA [Suspect]
  6. ACYCLOVIR [ACICLOVIR] [Concomitant]
     Dosage: 200 MG, QD
     Route: 048
  7. IRON [Concomitant]
     Dosage: UNK, DAILY
  8. IMITREX [Concomitant]
     Dosage: 25 MG, Q3HR AS NEEDED MAXIMUM DOSE OF 2 TABLETS IN 24 HOURS.
     Route: 048
  9. PERCOCET [Concomitant]
  10. HYDROCHLOROTHIAZIDE [Concomitant]
     Dosage: 25 MG, UNK

REACTIONS (2)
  - Deep vein thrombosis [None]
  - Pulmonary embolism [None]
